FAERS Safety Report 10571824 (Version 1)
Quarter: 2014Q4

REPORT INFORMATION
  Report Type: Spontaneous
  Country: PT (occurrence: PT)
  Receive Date: 20141107
  Receipt Date: 20141107
  Transmission Date: 20150529
  Serious: Yes (Death, Hospitalization)
  Sender: FDA-Public Use
  Company Number: PT-ACTAVIS-2014-23631

PATIENT
  Age: 35 Year
  Sex: Female
  Weight: 69 kg

DRUGS (8)
  1. TAVIST                             /00137202/ [Concomitant]
     Indication: PREMEDICATION
     Dosage: UNK
     Route: 042
  2. ONDANSETROM                        /00955301/ [Concomitant]
     Indication: PREMEDICATION
     Dosage: 24 MG, CYCLICAL; DOSAGE FF: 8MG
     Route: 048
     Dates: start: 20140131
  3. NEULASTA [Concomitant]
     Active Substance: PEGFILGRASTIM
     Indication: PROPHYLAXIS
     Dosage: UNK; AMGEN EUROPE, B.V.
     Route: 042
  4. PREDNISOLONA                       /00016201/ [Concomitant]
     Indication: PREMEDICATION
     Dosage: 100 MG, CYCLICAL; DOSAGE OFF FF: 20MG
     Route: 048
     Dates: start: 20140131
  5. DOCETAXEL ACTAVIS [Suspect]
     Active Substance: DOCETAXEL
     Indication: BREAST CANCER
     Dosage: 170 MG, CYCLICAL;CONCENTRATION:0,33MG/ML AND SPEED OF INFUSION:8,47ML /MIN
     Route: 042
     Dates: start: 20140131
  6. METOCLOPRAMIDA [Concomitant]
     Indication: PREMEDICATION
     Dosage: 80 MG, CYCLICAL; DOSAGE FF: 10MG
     Route: 048
     Dates: start: 20140131
  7. KALETRA [Concomitant]
     Active Substance: LOPINAVIR\RITONAVIR
     Indication: HIV INFECTION
     Dosage: UNK; ABB VIE LTD
     Route: 048
     Dates: end: 201401
  8. TRUVADA [Concomitant]
     Active Substance: EMTRICITABINE\TENOFOVIR DISOPROXIL FUMARATE
     Indication: HIV INFECTION
     Dosage: UNK; GILEAD SCIENCES INTERNATIOL LTD.
     Route: 048
     Dates: end: 201401

REACTIONS (9)
  - Neutropenia [Fatal]
  - Myalgia [Fatal]
  - Septic shock [Fatal]
  - Dermatitis exfoliative [Fatal]
  - Product quality issue [Unknown]
  - Asthenia [Fatal]
  - Diarrhoea [Fatal]
  - Mucosal inflammation [Fatal]
  - Vomiting [Fatal]

NARRATIVE: CASE EVENT DATE: 20140203
